FAERS Safety Report 9054850 (Version 1)
Quarter: 2013Q1

REPORT INFORMATION
  Report Type: Spontaneous
  Country: GB (occurrence: GB)
  Receive Date: 20130208
  Receipt Date: 20130208
  Transmission Date: 20140127
  Serious: Yes (Life-Threatening, Hospitalization)
  Sender: FDA-Public Use
  Company Number: GB-PFIZER INC-2013039936

PATIENT
  Age: 45 Year
  Sex: Female
  Weight: 40 kg

DRUGS (10)
  1. VENLAFAXINE HYDROCHLORIDE [Suspect]
     Indication: DEPRESSION
     Dosage: 75 MG, 2X/DAY
     Route: 048
  2. CARBIMAZOLE [Suspect]
     Indication: HYPERTHYROIDISM
     Dosage: 20 MG, 1X/DAY
     Route: 048
  3. CITALOPRAM [Suspect]
     Indication: DEPRESSION
     Dosage: 20 MG, 1X/DAY
     Route: 048
  4. THYROXINE SODIUM [Concomitant]
     Dosage: 25 UG, 1X/DAY
  5. DIAZEPAM [Concomitant]
     Dosage: 4 MG, UNK
  6. ASPIRIN [Concomitant]
     Dosage: 75 MG, 1X/DAY IN THE MORNING
  7. THIAMINE [Concomitant]
     Dosage: 100 MG, 3X/DAY
  8. VITAMIN A AND D [Concomitant]
     Dosage: 1 DF, 1X/DAY IN THE MORNING
  9. VITAMIN B COMPLEX [Concomitant]
     Dosage: 1 DF, 2X/DAY
  10. PROPRANOLOL [Concomitant]
     Dosage: 40 MG, 2X/DAY

REACTIONS (1)
  - Neutropenic sepsis [Not Recovered/Not Resolved]
